FAERS Safety Report 11876095 (Version 1)
Quarter: 2015Q4

REPORT INFORMATION
  Report Type: Spontaneous
  Country: JP (occurrence: JP)
  Receive Date: 20151229
  Receipt Date: 20151229
  Transmission Date: 20160305
  Serious: Yes (Hospitalization, Disabling)
  Sender: FDA-Public Use
  Company Number: JP-JNJFOC-20150914305

PATIENT
  Age: 64 Year
  Sex: Male
  Weight: 56 kg

DRUGS (1)
  1. REMICADE [Suspect]
     Active Substance: INFLIXIMAB
     Indication: RHEUMATOID ARTHRITIS
     Route: 042

REACTIONS (2)
  - Osteonecrosis of jaw [Recovering/Resolving]
  - Osteomyelitis [Recovering/Resolving]

NARRATIVE: CASE EVENT DATE: 20150218
